FAERS Safety Report 14385056 (Version 5)
Quarter: 2018Q1

REPORT INFORMATION
  Report Type: Spontaneous
  Country: US (occurrence: US)
  Receive Date: 20180115
  Receipt Date: 20180115
  Transmission Date: 20180509
  Serious: Yes (Other)
  Sender: FDA-Public Use
  Company Number: US-CONCORDIA PHARMACEUTICALS INC.-GSH201801-000171

PATIENT

DRUGS (6)
  1. PITOCIN [Suspect]
     Active Substance: OXYTOCIN
  2. NORTRIPTYLINE [Suspect]
     Active Substance: NORTRIPTYLINE
  3. METHOTREXATE. [Suspect]
     Active Substance: METHOTREXATE
  4. HYDROXYCHLOROQUINE [Suspect]
     Active Substance: HYDROXYCHLOROQUINE
  5. GABAPENTIN. [Suspect]
     Active Substance: GABAPENTIN
  6. LYRICA [Suspect]
     Active Substance: PREGABALIN

REACTIONS (1)
  - Drug hypersensitivity [Unknown]
